FAERS Safety Report 12988030 (Version 1)
Quarter: 2016Q4

REPORT INFORMATION
  Report Type: Spontaneous
  Country: US (occurrence: US)
  Receive Date: 20161130
  Receipt Date: 20161130
  Transmission Date: 20170207
  Serious: Yes (Hospitalization, Other)
  Sender: FDA-Public Use
  Company Number: US-TEVA-716559USA

PATIENT
  Sex: Female
  Weight: 62.2 kg

DRUGS (11)
  1. LISINOPRIL. [Interacting]
     Active Substance: LISINOPRIL
     Dosage: 20 MILLIGRAM DAILY;
  2. METFORMIN [Concomitant]
     Active Substance: METFORMIN HYDROCHLORIDE
  3. LASIX [Interacting]
     Active Substance: FUROSEMIDE
     Dosage: 20 MILLIGRAM DAILY;
  4. COREG [Interacting]
     Active Substance: CARVEDILOL
     Dosage: 6.25 MILLIGRAM DAILY;
  5. LISINOPRIL. [Interacting]
     Active Substance: LISINOPRIL
  6. LISINOPRIL. [Interacting]
     Active Substance: LISINOPRIL
     Dosage: 40 MILLIGRAM DAILY;
  7. NORVASC [Concomitant]
     Active Substance: AMLODIPINE BESYLATE
  8. ASA [Concomitant]
     Active Substance: ASPIRIN
  9. SPIRONOLACTONE. [Suspect]
     Active Substance: SPIRONOLACTONE
     Dosage: 12.5 MILLIGRAM DAILY;
  10. LASIX [Interacting]
     Active Substance: FUROSEMIDE
     Dosage: 40 MILLIGRAM DAILY;
  11. COREG [Interacting]
     Active Substance: CARVEDILOL
     Dosage: 24.5 MILLIGRAM DAILY;

REACTIONS (7)
  - Ejection fraction decreased [Unknown]
  - Malabsorption [Unknown]
  - Congestive cardiomyopathy [Unknown]
  - Dyspnoea exertional [Unknown]
  - Fatigue [Unknown]
  - Cardiac failure congestive [Unknown]
  - Amyloidosis [Unknown]
